FAERS Safety Report 18228559 (Version 1)
Quarter: 2020Q3

REPORT INFORMATION
  Report Type: Spontaneous
  Country: US (occurrence: US)
  Receive Date: 20200903
  Receipt Date: 20200903
  Transmission Date: 20201103
  Serious: Yes (Hospitalization, Other)
  Sender: FDA-Public Use
  Company Number: US-PURDUE-USA-2020-0164203

PATIENT
  Sex: Male

DRUGS (1)
  1. OXYCODONE HYDROCHLORIDE (SIMILAR TO NDA 22?272) [Suspect]
     Active Substance: OXYCODONE HYDROCHLORIDE
     Indication: INTERVERTEBRAL DISC INJURY
     Dosage: 30 MG, UNK,150 FOR THIRTY DAYS
     Route: 048

REACTIONS (7)
  - Withdrawal syndrome [Unknown]
  - Hospitalisation [Unknown]
  - Adverse drug reaction [Unknown]
  - Anxiety [Unknown]
  - Rehabilitation therapy [Unknown]
  - General physical health deterioration [Unknown]
  - Mental impairment [Unknown]
